FAERS Safety Report 4381588-6 (Version None)
Quarter: 2004Q2

REPORT INFORMATION
  Report Type: 
  Country: None (occurrence: None)
  Receive Date: 20040615
  Receipt Date: 20040528
  Transmission Date: 20050107
  Serious: Yes (Other)
  Sender: FDA-Public Use
  Company Number: ATO-04-0538

PATIENT
  Age: 82 Year
  Sex: Male
  Weight: 79.8331 kg

DRUGS (9)
  1. TRISENOX [Suspect]
     Indication: MYELODYSPLASTIC SYNDROME
     Dosage: 20 MG (0.25 MG/KG, 2X/WK), IVI
     Route: 042
     Dates: start: 20040301, end: 20040312
  2. VITAMIN B6 [Concomitant]
  3. LASIX [Concomitant]
  4. KCL TAB [Concomitant]
  5. PROZAC [Concomitant]
  6. MAGNESIUM SULFATE [Concomitant]
  7. ASPIRIN [Concomitant]
  8. PROCRIT [Concomitant]
  9. ALPHA LIPOIC ACID [Concomitant]

REACTIONS (1)
  - HYPERURICAEMIA [None]
